FAERS Safety Report 6392247-2 (Version None)
Quarter: 2009Q4

REPORT INFORMATION
  Report Type: 
  Country: None (occurrence: None)
  Receive Date: 20091007
  Receipt Date: 20090924
  Transmission Date: 20100525
  Serious: Yes (Other)
  Sender: FDA-Public Use
  Company Number: US-PFIZER INC-2009245009

PATIENT
  Sex: Female
  Weight: 64.863 kg

DRUGS (7)
  1. CHANTIX [Suspect]
     Indication: SMOKING CESSATION THERAPY
     Dosage: 1 MG, 2X/DAY
     Route: 048
     Dates: end: 20090401
  2. CHANTIX [Suspect]
     Dosage: 0.5 MG, 1X/DAY
     Route: 048
  3. GEODON [Concomitant]
     Indication: BIPOLAR DISORDER
     Dosage: 80 MG, 2X/DAY
     Route: 048
  4. PREMARIN [Concomitant]
     Indication: MENOPAUSE
     Dosage: 6.25 MG, 1X/DAY
     Route: 048
  5. IBUPROFEN [Concomitant]
     Indication: SPONDYLITIS
     Dosage: 800 MG, 2X/DAY
     Route: 048
  6. VITAMINS [Concomitant]
     Dosage: UNK
     Route: 048
  7. LITHIUM CARBONATE [Concomitant]

REACTIONS (2)
  - MUSCULOSKELETAL STIFFNESS [None]
  - WEIGHT INCREASED [None]
